FAERS Safety Report 7718975-1 (Version None)
Quarter: 2011Q3

REPORT INFORMATION
  Report Type: 
  Country: None (occurrence: None)
  Receive Date: 20110824
  Receipt Date: 20110816
  Transmission Date: 20111222
  Serious: Yes (Other)
  Sender: FDA-Public Use
  Company Number: 7076933

PATIENT
  Sex: Male

DRUGS (1)
  1. LEVOTHYROXINE SODIUM [Suspect]
     Indication: GOITRE
     Dosage: 50 OR 75 UG DAILY, ORAL
     Route: 048
     Dates: start: 20070101

REACTIONS (7)
  - TREMOR [None]
  - ANXIETY [None]
  - THYROID DISORDER [None]
  - BLOOD PRESSURE INCREASED [None]
  - DYSPNOEA [None]
  - CONVERSION DISORDER [None]
  - MALAISE [None]
